FAERS Safety Report 7473824-4 (Version None)
Quarter: 2011Q2

REPORT INFORMATION
  Report Type: 
  Country: None (occurrence: None)
  Receive Date: 20110511
  Receipt Date: 20110505
  Transmission Date: 20111010
  Serious: Yes (Other)
  Sender: FDA-Public Use
  Company Number: US-ABBOTT-11P-163-0723813-00

PATIENT
  Age: 71 Year
  Sex: Female

DRUGS (12)
  1. DEXAMETHASONE [Suspect]
     Route: 042
  2. VALPROIC ACID [Interacting]
     Indication: COMPLEX PARTIAL SEIZURES
     Dosage: LOADING DOSE ONCE
     Route: 042
  3. WARFARIN SODIUM [Interacting]
     Indication: DEEP VEIN THROMBOSIS
     Dosage: 2.5 MG MON-FRI, 5 MG SAT AND SUN
  4. MIDAZOLAM [Concomitant]
     Indication: COMPLEX PARTIAL SEIZURES
     Route: 042
  5. WARFARIN SODIUM [Interacting]
  6. VALPROIC ACID [Interacting]
     Route: 050
  7. VALPROIC ACID [Interacting]
     Route: 042
  8. PRAVASTATIN [Concomitant]
     Indication: PRODUCT USED FOR UNKNOWN INDICATION
     Dosage: 20 MG DAILY
     Route: 048
  9. FISH OIL [Concomitant]
     Indication: PRODUCT USED FOR UNKNOWN INDICATION
  10. DEXAMETHASONE [Suspect]
     Indication: PRODUCT USED FOR UNKNOWN INDICATION
  11. WARFARIN SODIUM [Interacting]
     Route: 050
  12. LEVETIRACETAM [Concomitant]
     Indication: COMPLEX PARTIAL SEIZURES
     Route: 042

REACTIONS (2)
  - DRUG INTERACTION [None]
  - INTERNATIONAL NORMALISED RATIO INCREASED [None]
